FAERS Safety Report 9777383 (Version 1)
Quarter: 2013Q4

REPORT INFORMATION
  Report Type: Spontaneous
  Country: FR (occurrence: FR)
  Receive Date: 20131221
  Receipt Date: 20131221
  Transmission Date: 20140711
  Serious: Yes (Hospitalization)
  Sender: FDA-Public Use
  Company Number: PHHY2013FR149303

PATIENT
  Age: 66 Year
  Sex: Male

DRUGS (4)
  1. COTAREG [Suspect]
     Indication: HYPERTENSION
     Dosage: UNK UKN, UNK
     Dates: end: 201310
  2. ALIMTA [Suspect]
     Indication: LUNG ADENOCARCINOMA
     Dosage: UNK UKN, UNK
     Route: 042
     Dates: start: 20131008
  3. CISPLATINE [Suspect]
     Indication: LUNG ADENOCARCINOMA
     Dosage: UNK UKN, UNK
     Route: 042
     Dates: start: 20131008
  4. CHEMOTHERAPEUTICS [Concomitant]

REACTIONS (2)
  - Tubulointerstitial nephritis [Recovering/Resolving]
  - Renal failure acute [Recovering/Resolving]
